FAERS Safety Report 6877559-8 (Version None)
Quarter: 2010Q3

REPORT INFORMATION
  Report Type: 
  Country: None (occurrence: None)
  Receive Date: 20100727
  Receipt Date: 20100219
  Transmission Date: 20110219
  Serious: No
  Sender: FDA-Public Use
  Company Number: US-ABBOTT-10P-163-0628467-00

PATIENT
  Sex: Female
  Weight: 99.88 kg

DRUGS (6)
  1. SYNTHROID [Suspect]
     Indication: HYPERTHYROIDISM
     Dosage: FORM STRENGTH 200 MICROGRAMS, SAMPLE PACK
     Dates: start: 20100212, end: 20100219
  2. SYNTHROID [Suspect]
     Indication: HYPOTHYROIDISM
  3. SYNTHROID [Suspect]
     Indication: HYPOTHYROIDISM
     Dosage: SAMPLE
     Dates: start: 20100212, end: 20100219
  4. SYNTHROID [Suspect]
     Indication: HYPERTHYROIDISM
  5. SYNTHROID [Suspect]
     Indication: HYPOTHYROIDISM
     Dates: start: 19970101, end: 20100212
  6. SYNTHROID [Suspect]
     Indication: HYPERTHYROIDISM
     Route: 048

REACTIONS (5)
  - CHILLS [None]
  - DYSPNOEA [None]
  - EXPIRED DRUG ADMINISTERED [None]
  - FEELING COLD [None]
  - INSOMNIA [None]
